FAERS Safety Report 15064159 (Version 1)
Quarter: 2018Q2

REPORT INFORMATION
  Report Type: Spontaneous
  Country: US (occurrence: US)
  Receive Date: 20180625
  Receipt Date: 20180625
  Transmission Date: 20180711
  Serious: Yes (Other)
  Sender: FDA-Public Use
  Company Number: US-SHIRE-US201822226

PATIENT
  Age: 32 Year
  Sex: Female

DRUGS (1)
  1. NATPARA (PARATHYROID HORMONE) [Suspect]
     Active Substance: PARATHYROID HORMONE
     Indication: HYPOPARATHYROIDISM
     Dosage: UNK UNK, 1X/DAY:QD
     Route: 050
     Dates: start: 201706

REACTIONS (4)
  - Product quality issue [Unknown]
  - Hospitalisation [Unknown]
  - Blood calcium decreased [Unknown]
  - Drug ineffective [Unknown]
